FAERS Safety Report 4635895-X (Version None)
Quarter: 2005Q2

REPORT INFORMATION
  Report Type: 
  Country: None (occurrence: None)
  Receive Date: 20050415
  Receipt Date: 20030203
  Transmission Date: 20051028
  Serious: Yes (Death, Life-Threatening, Hospitalization)
  Sender: FDA-Public Use
  Company Number: US-BRISTOL-MYERS SQUIBB COMPANY-12177093

PATIENT
  Age: 70 Year
  Sex: Male

DRUGS (7)
  1. MEVALOTIN [Suspect]
     Indication: HYPERLIPIDAEMIA
     Route: 048
     Dates: start: 19970910, end: 20020904
  2. ASPIRIN [Concomitant]
     Indication: LACUNAR INFARCTION
     Dates: start: 20010530, end: 20020904
  3. AMLODIN [Concomitant]
     Indication: ESSENTIAL HYPERTENSION
     Dates: start: 19980701
  4. ACECOL [Concomitant]
     Indication: ESSENTIAL HYPERTENSION
     Dates: start: 19951129, end: 20021113
  5. NATRIX [Concomitant]
     Indication: ESSENTIAL HYPERTENSION
     Dates: start: 20010627, end: 20021113
  6. DIMELIN [Concomitant]
     Indication: DIABETES MELLITUS
     Dates: start: 20020403, end: 20021225
  7. PL GRANULES [Concomitant]
     Dates: start: 20011114

REACTIONS (1)
  - METASTATIC CARCINOMA OF THE BLADDER [None]
